FAERS Safety Report 5040336-7 (Version None)
Quarter: 2006Q2

REPORT INFORMATION
  Report Type: 
  Country: None (occurrence: None)
  Receive Date: 20060630
  Receipt Date: 20060526
  Transmission Date: 20061013
  Serious: No
  Sender: FDA-Public Use
  Company Number: US-BRISTOL-MYERS SQUIBB COMPANY-13391594

PATIENT
  Sex: Male
  Weight: 100 kg

DRUGS (5)
  1. ORENCIA [Suspect]
     Indication: RHEUMATOID ARTHRITIS
     Route: 042
     Dates: start: 20060508
  2. PREDNISONE [Concomitant]
  3. OXYCODONE HCL [Concomitant]
  4. ASPIRIN [Concomitant]
  5. LEFLUNOMIDE [Concomitant]

REACTIONS (1)
  - DRUG INEFFECTIVE [None]
